FAERS Safety Report 7507275-0 (Version None)
Quarter: 2011Q2

REPORT INFORMATION
  Report Type: 
  Country: None (occurrence: None)
  Receive Date: 20110526
  Receipt Date: 20110518
  Transmission Date: 20111010
  Serious: Yes (Other)
  Sender: FDA-Public Use
  Company Number: GB-GENENTECH-319255

PATIENT
  Sex: Male

DRUGS (2)
  1. RITUXAN [Suspect]
     Indication: NON-HODGKIN'S LYMPHOMA
     Dosage: UNK UNK, Q3M
     Route: 065
     Dates: start: 20081001, end: 20100901
  2. RITUXAN [Suspect]
     Dosage: UNK
     Route: 065
     Dates: start: 20080401, end: 20081001

REACTIONS (2)
  - ABDOMINAL PAIN LOWER [None]
  - DEPRESSION [None]
